FAERS Safety Report 15056921 (Version 1)
Quarter: 2018Q2

REPORT INFORMATION
  Report Type: Spontaneous
  Country: US (occurrence: US)
  Receive Date: 20180624
  Receipt Date: 20180624
  Transmission Date: 20180711
  Serious: No
  Sender: FDA-Public Use
  Company Number: US-JNJFOC-20180615300

PATIENT
  Sex: Male

DRUGS (8)
  1. IMBRUVICA [Suspect]
     Active Substance: IBRUTINIB
     Indication: NON-HODGKIN^S LYMPHOMA
     Route: 048
     Dates: start: 201707
  2. PRILOSEC [Concomitant]
     Active Substance: OMEPRAZOLE MAGNESIUM
  3. FINASTERIDE. [Concomitant]
     Active Substance: FINASTERIDE
  4. FLUTICASONE. [Concomitant]
     Active Substance: FLUTICASONE
  5. LYRICA [Concomitant]
     Active Substance: PREGABALIN
     Dosage: DISCONTINUED
  6. FAMOTIDINE. [Concomitant]
     Active Substance: FAMOTIDINE
  7. ASPIRIN. [Concomitant]
     Active Substance: ASPIRIN
  8. METOPROLOL. [Concomitant]
     Active Substance: METOPROLOL

REACTIONS (1)
  - Drug ineffective [Unknown]
